FAERS Safety Report 12798233 (Version 1)
Quarter: 2016Q3

REPORT INFORMATION
  Report Type: Spontaneous
  Country: US (occurrence: US)
  Receive Date: 20160930
  Receipt Date: 20160930
  Transmission Date: 20161109
  Serious: No
  Sender: FDA-Public Use
  Company Number: None

PATIENT

DRUGS (1)
  1. MONEL^S FERRIC SUBSULFATE [Suspect]
     Active Substance: FERRIC SUBSULFATE

REACTIONS (3)
  - Liquid product physical issue [None]
  - Product quality issue [None]
  - Product physical consistency issue [None]

NARRATIVE: CASE EVENT DATE: 20160927
